FAERS Safety Report 7736494-3 (Version None)
Quarter: 2011Q3

REPORT INFORMATION
  Report Type: 
  Country: None (occurrence: None)
  Receive Date: 20110902
  Receipt Date: 20110824
  Transmission Date: 20111222
  Serious: Yes (Death, Life-Threatening, Hospitalization)
  Sender: FDA-Public Use
  Company Number: 2011MA012539

PATIENT
  Age: 7 Month
  Sex: Female

DRUGS (5)
  1. MITOXANTRONE [Suspect]
     Indication: ACUTE MYELOID LEUKAEMIA
     Dosage: 5 MG/M2
  2. HYDROCORTISONE 2.5% CREAM [Suspect]
     Indication: ACUTE MYELOID LEUKAEMIA
     Dosage: 10 MG;1X
  3. CYTARABINE [Suspect]
     Indication: ACUTE MYELOID LEUKAEMIA
     Dosage: 2000 MG/M2
  4. METHOTREXATE [Suspect]
     Indication: ACUTE MYELOID LEUKAEMIA
     Dosage: 3 MG;INTH
     Route: 055
  5. ETOPOSIDE [Suspect]
     Indication: ACUTE MYELOID LEUKAEMIA
     Dosage: 150 MG/M2

REACTIONS (20)
  - RESPIRATORY FAILURE [None]
  - HISTIOCYTOSIS HAEMATOPHAGIC [None]
  - ACUTE RESPIRATORY DISTRESS SYNDROME [None]
  - FEBRILE NEUTROPENIA [None]
  - GASTROINTESTINAL HAEMORRHAGE [None]
  - HEPATOSPLENOMEGALY [None]
  - HYPERBILIRUBINAEMIA [None]
  - SERUM FERRITIN INCREASED [None]
  - CONTINUOUS HAEMODIAFILTRATION [None]
  - SHOCK [None]
  - DISSEMINATED INTRAVASCULAR COAGULATION [None]
  - LYMPHOHISTIOCYTOSIS [None]
  - BONE MARROW FAILURE [None]
  - PYREXIA [None]
  - BLOOD LACTATE DEHYDROGENASE INCREASED [None]
  - WHITE BLOOD CELL COUNT DECREASED [None]
  - ILEUS [None]
  - JAUNDICE [None]
  - PULMONARY HAEMORRHAGE [None]
  - LUNG INDURATION [None]
